FAERS Safety Report 11122615 (Version 1)
Quarter: 2015Q2

REPORT INFORMATION
  Report Type: Spontaneous
  Country: FR (occurrence: FR)
  Receive Date: 20150519
  Receipt Date: 20150519
  Transmission Date: 20150821
  Serious: Yes (Other)
  Sender: FDA-Public Use
  Company Number: FR-SA-2015SA065454

PATIENT

DRUGS (3)
  1. CLARITHROMYCIN. [Suspect]
     Active Substance: CLARITHROMYCIN
     Route: 065
  2. RIFAMPICIN [Suspect]
     Active Substance: RIFAMPIN
     Route: 065
  3. RIFAMPICIN [Suspect]
     Active Substance: RIFAMPIN
     Route: 065

REACTIONS (3)
  - Drug reaction with eosinophilia and systemic symptoms [Unknown]
  - Dermatitis exfoliative [Unknown]
  - Rash maculo-papular [Unknown]
